FAERS Safety Report 6392022-9 (Version None)
Quarter: 2009Q4

REPORT INFORMATION
  Report Type: 
  Country: None (occurrence: None)
  Receive Date: 20091007
  Receipt Date: 20090930
  Transmission Date: 20100525
  Serious: Yes (Other)
  Sender: FDA-Public Use
  Company Number: B0595546A

PATIENT
  Age: 26 Year
  Sex: Female

DRUGS (2)
  1. ALLI [Suspect]
     Route: 048
     Dates: start: 20090521, end: 20090613
  2. ADCAL D3 [Concomitant]
     Route: 048

REACTIONS (1)
  - RENAL FAILURE [None]
